FAERS Safety Report 21051022 (Version 1)
Quarter: 2022Q3

REPORT INFORMATION
  Report Type: Other
  Country: GB (occurrence: GB)
  Receive Date: 20220707
  Receipt Date: 20220707
  Transmission Date: 20221026
  Serious: Yes (Hospitalization, Other)
  Sender: FDA-Public Use
  Company Number: GB-CELLTRION INC.-2022GB010615

PATIENT

DRUGS (12)
  1. INFLIXIMAB [Suspect]
     Active Substance: INFLIXIMAB
     Indication: Product used for unknown indication
  2. CALCIUM CARBONATE\CHOLECALCIFEROL [Concomitant]
     Active Substance: CALCIUM CARBONATE\CHOLECALCIFEROL
     Dosage: 1 BD
  3. DERMOL 500 [Concomitant]
     Dosage: UNK, PRN
  4. DERMOL 500 [Concomitant]
     Dosage: 500 LOTION (DERMAL LABORATORIES LTD) USE AS A SOAP SUBSTITUTE 500 ML - USES REGULARLY
     Dates: start: 20211007
  5. LANSOPRAZOLE [Concomitant]
     Active Substance: LANSOPRAZOLE
     Dosage: 15 MG, 1 OM
  6. POLYETHYLENE GLYCOLS [Concomitant]
     Active Substance: POLYETHYLENE GLYCOLS
     Dosage: 1 BD PRN - WILL NEED ON D/C
  7. PENTASA [Concomitant]
     Active Substance: MESALAMINE
     Dosage: 2G BD
  8. PENTASA [Concomitant]
     Active Substance: MESALAMINE
     Dosage: 2G,  MODIFIED-RELEASE GRANULES SACHETS ONE SACHET TO BE TAKEN TWICE A DAY
  9. MESALAMINE [Concomitant]
     Active Substance: MESALAMINE
     Dosage: 1G FOAM ENEMA - 1G ON
  10. PREDNISOLONE [Concomitant]
     Active Substance: PREDNISOLONE
     Dosage: - 40MG OM FOR 12 MORE DAYS (HAD 8 MORE DAYS LEFT ON 40MG) THEN REDUCE BY 5MG EVERY 7 DAYS TILL STOP
  11. MESALAMINE [Concomitant]
     Active Substance: MESALAMINE
     Dosage: 1G/100ML ENEMA USE ONE DAILY. 28 ENEMA - HOLD WHILST FLARING
     Dates: start: 20220104
  12. MINERAL OIL\PETROLATUM\WAX, EMULSIFYING [Concomitant]
     Active Substance: MINERAL OIL\PETROLATUM\WAX, EMULSIFYING
     Dosage: APPLY TO SKIN AS REQUIRED 500 GRAM
     Dates: start: 20210901, end: 20220104

REACTIONS (1)
  - Neuropathy peripheral [Unknown]
